FAERS Safety Report 7609499-0 (Version None)
Quarter: 2011Q3

REPORT INFORMATION
  Report Type: 
  Country: None (occurrence: None)
  Receive Date: 20110714
  Receipt Date: 20110704
  Transmission Date: 20111222
  Serious: Yes (Other)
  Sender: FDA-Public Use
  Company Number: PHHY2011US60220

PATIENT
  Age: 67 Year
  Sex: Male

DRUGS (2)
  1. LEUPRORELIN [Suspect]
     Indication: PROSTATE CANCER
  2. BICALUTAMIDE [Concomitant]

REACTIONS (8)
  - LIBIDO DECREASED [None]
  - METASTASES TO BONE [None]
  - BONE DENSITY DECREASED [None]
  - ASTHENIA [None]
  - FATIGUE [None]
  - OSTEOPOROSIS [None]
  - NEOPLASM PROGRESSION [None]
  - FLUSHING [None]
